FAERS Safety Report 8759651 (Version 2)
Quarter: 2012Q4

REPORT INFORMATION
  Report Type: 
  Country: US (occurrence: US)
  Receive Date: 20120829
  Receipt Date: 20121206
  Transmission Date: 20130627
  Serious: Yes (Other)
  Sender: FDA-Public Use
  Company Number: US-009507513-1208USA006752

PATIENT
  Sex: Female

DRUGS (2)
  1. PRINIVIL [Suspect]
     Dosage: UNK
     Route: 048
     Dates: end: 2010
  2. HYDROCHLOROTHIAZIDE [Suspect]
     Dosage: UNK
     Route: 048
     Dates: end: 2010

REACTIONS (1)
  - Cutaneous lupus erythematosus [Recovering/Resolving]
